FAERS Safety Report 19931748 (Version 5)
Quarter: 2022Q2

REPORT INFORMATION
  Report Type: Report from Study
  Country: FR (occurrence: FR)
  Receive Date: 20211007
  Receipt Date: 20220408
  Transmission Date: 20220721
  Serious: Yes (Death, Other)
  Sender: FDA-Public Use
  Company Number: FR-GILEAD-2021-0551502

PATIENT
  Age: 51 Year
  Sex: Female
  Weight: 54 kg

DRUGS (15)
  1. SACITUZUMAB GOVITECAN [Suspect]
     Active Substance: SACITUZUMAB GOVITECAN
     Indication: Breast cancer
     Dosage: UNK
     Route: 042
     Dates: start: 20210721, end: 20210908
  2. GEMZAR [Suspect]
     Active Substance: GEMCITABINE HYDROCHLORIDE
     Indication: Breast cancer
     Dosage: UNK CYCLICAL
     Route: 042
     Dates: start: 202105, end: 202107
  3. SKENAN [Concomitant]
     Active Substance: MORPHINE SULFATE
  4. MORPHINE SULFATE [Concomitant]
     Active Substance: MORPHINE SULFATE
  5. EMEND [Concomitant]
     Active Substance: APREPITANT
  6. ONDANSETRON [Concomitant]
     Active Substance: ONDANSETRON
  7. PREDNISOLONE [Concomitant]
     Active Substance: PREDNISOLONE
  8. FILGRASTIM [Concomitant]
     Active Substance: FILGRASTIM
  9. METOCLOPRAMIDE [Concomitant]
     Active Substance: METOCLOPRAMIDE
  10. ACETAMINOPHEN [Concomitant]
     Active Substance: ACETAMINOPHEN
  11. SODIUM BICARBONATE [Concomitant]
     Active Substance: SODIUM BICARBONATE
  12. IMODIUM [Concomitant]
     Active Substance: LOPERAMIDE HYDROCHLORIDE
  13. POLYETHYLENE GLYCOL 3350\POTASSIUM CHLORIDE\SODIUM BICARBONATE\SODIUM [Concomitant]
     Active Substance: POLYETHYLENE GLYCOL 3350\POTASSIUM CHLORIDE\SODIUM BICARBONATE\SODIUM CHLORIDE
  14. XANAX [Concomitant]
     Active Substance: ALPRAZOLAM
  15. LYRICA [Concomitant]
     Active Substance: PREGABALIN

REACTIONS (5)
  - Hepatic fibrosis [Fatal]
  - Cholestasis [Fatal]
  - Liver disorder [Fatal]
  - Disease progression [Fatal]
  - Liver injury [Fatal]

NARRATIVE: CASE EVENT DATE: 20210809
